FAERS Safety Report 5958835-X (Version None)
Quarter: 2008Q4

REPORT INFORMATION
  Report Type: 
  Country: None (occurrence: None)
  Receive Date: 20081117
  Receipt Date: 20081031
  Transmission Date: 20090506
  Serious: Yes (Other)
  Sender: FDA-Public Use
  Company Number: CHPA2008US19305

PATIENT
  Age: 56 Year
  Sex: Male
  Weight: 93 kg

DRUGS (1)
  1. THERAFLU WARMING RELIEF COLD + CHEST CONG (NCH) (ACETAMINOPHEN (PARACE [Suspect]
     Indication: NASOPHARYNGITIS
     Dosage: 6 TSP, ONCE/SINGLE, ORAL
     Route: 048
     Dates: start: 20081031, end: 20081031

REACTIONS (1)
  - BLOOD PRESSURE INCREASED [None]
